FAERS Safety Report 11618943 (Version 1)
Quarter: 2015Q4

REPORT INFORMATION
  Report Type: Spontaneous
  Country: JP (occurrence: JP)
  Receive Date: 20151012
  Receipt Date: 20151012
  Transmission Date: 20160304
  Serious: Yes (Other)
  Sender: FDA-Public Use
  Company Number: JP-ACTAVIS-2015-21852

PATIENT
  Age: 50 Year
  Sex: Female

DRUGS (3)
  1. DOCETAXEL (UNKNOWN) [Suspect]
     Active Substance: DOCETAXEL
     Indication: OESOPHAGEAL CARCINOMA
     Dosage: UNK, WEEKLY
     Route: 065
  2. FLUOROURACIL (UNKNOWN) [Suspect]
     Active Substance: FLUOROURACIL
     Indication: OESOPHAGEAL CARCINOMA
     Dosage: UNK
     Route: 065
  3. CISPLATIN (UNKNOWN) [Suspect]
     Active Substance: CISPLATIN
     Indication: OESOPHAGEAL CARCINOMA
     Dosage: UNK
     Route: 065

REACTIONS (2)
  - Leukopenia [Unknown]
  - Anaemia [Unknown]
